FAERS Safety Report 13000326 (Version 2)
Quarter: 2016Q4

REPORT INFORMATION
  Report Type: Report from Study
  Country: US (occurrence: US)
  Receive Date: 20161206
  Receipt Date: 20161214
  Transmission Date: 20170207
  Serious: Yes (Other)
  Sender: FDA-Public Use
  Company Number: US-ROCHE-1863488

PATIENT

DRUGS (2)
  1. BEVACIZUMAB [Suspect]
     Active Substance: BEVACIZUMAB
     Indication: GLIOBLASTOMA
     Route: 013
  2. MANNITOL. [Suspect]
     Active Substance: MANNITOL
     Indication: GLIOBLASTOMA
     Route: 013

REACTIONS (2)
  - Seizure [Unknown]
  - Headache [Unknown]
